FAERS Safety Report 6048039-7 (Version None)
Quarter: 2009Q1

REPORT INFORMATION
  Report Type: 
  Country: None (occurrence: None)
  Receive Date: 20090121
  Receipt Date: 20090121
  Transmission Date: 20090719
  Serious: Yes (Disabling)
  Sender: FDA-Public Use
  Company Number: None

PATIENT
  Sex: Female
  Weight: 72.5755 kg

DRUGS (4)
  1. XIBROM [Suspect]
     Indication: RETINAL DISORDER
     Dosage: 1 DROP 2 TIMES DAY
     Dates: start: 20080424, end: 20080901
  2. XIBROM [Suspect]
     Indication: SWELLING
     Dosage: 1 DROP 2 TIMES DAY
     Dates: start: 20080424, end: 20080901
  3. LOTEMAX [Suspect]
     Indication: RETINAL DISORDER
     Dosage: 1 DROP 4 TIMES DAY
     Dates: start: 20080424, end: 20080901
  4. LOTEMAX [Suspect]
     Indication: SWELLING
     Dosage: 1 DROP 4 TIMES DAY
     Dates: start: 20080424, end: 20080901

REACTIONS (2)
  - EYE BURNS [None]
  - PAIN [None]
